FAERS Safety Report 4334119-0 (Version None)
Quarter: 2004Q2

REPORT INFORMATION
  Report Type: 
  Country: None (occurrence: None)
  Receive Date: 20040405
  Receipt Date: 20040323
  Transmission Date: 20050107
  Serious: Yes (Life-Threatening, Hospitalization)
  Sender: FDA-Public Use
  Company Number: 2004030018(0)

PATIENT
  Age: 17 Year
  Sex: Female

DRUGS (3)
  1. FELBATOL [Suspect]
     Indication: CONVULSION
     Dosage: 1000 MG, PO
     Route: 048
  2. DILANTIN [Suspect]
     Indication: PARTIAL SEIZURES
  3. PHENOBARBITAL TAB [Concomitant]

REACTIONS (6)
  - APLASTIC ANAEMIA [None]
  - BLOOD CALCIUM DECREASED [None]
  - PARTIAL SEIZURES [None]
  - PROTEIN TOTAL DECREASED [None]
  - PYREXIA [None]
  - URINARY TRACT INFECTION [None]
